FAERS Safety Report 8069637-5 (Version None)
Quarter: 2012Q1

REPORT INFORMATION
  Report Type: 
  Country: None (occurrence: None)
  Receive Date: 20120119
  Receipt Date: 20120104
  Transmission Date: 20120608
  Serious: Yes (Death, Hospitalization)
  Sender: FDA-Public Use
  Company Number: A0949717A

PATIENT
  Age: 88 Year
  Sex: Female

DRUGS (12)
  1. DIGOXIN [Suspect]
     Indication: PRODUCT USED FOR UNKNOWN INDICATION
     Dosage: 125 MG/ ORAL
     Route: 048
     Dates: start: 20100512
  2. AMLODIPINE [Concomitant]
  3. SOLIFENACIN SUCCINATE [Concomitant]
  4. CLOPIDOGREL BISULFATE [Concomitant]
  5. FENOFIBRATE [Concomitant]
  6. RIVASTIGMINE HYDROG. TARTR [Concomitant]
  7. ALPRAZOLAM [Concomitant]
  8. PAROXETINE HYDROCHLORIDE [Suspect]
     Indication: PRODUCT USED FOR UNKNOWN INDICATION
     Dosage: 10 MG
  9. PANTOPRAZOLE [Concomitant]
  10. MEMANTINE HYDROCHLORIDE [Concomitant]
  11. LEVETIRACETAM [Concomitant]
  12. POTASSIUM CHLORIDE [Concomitant]

REACTIONS (2)
  - PNEUMONIA [None]
  - FALL [None]
